FAERS Safety Report 8829595 (Version 1)
Quarter: 2012Q4

REPORT INFORMATION
  Report Type: 
  Country: US (occurrence: US)
  Receive Date: 20121008
  Receipt Date: 20121008
  Transmission Date: 20130627
  Serious: Yes (Hospitalization, Other)
  Sender: FDA-Public Use
  Company Number: US-ROCHE-1130083

PATIENT
  Age: 68 Year
  Sex: Male
  Weight: 83.99 kg

DRUGS (16)
  1. RITUXAN [Suspect]
     Indication: CHRONIC LYMPHOCYTIC LEUKAEMIA
     Route: 042
     Dates: start: 199903, end: 199905
  2. RITUXAN [Suspect]
     Route: 065
     Dates: start: 20010108
  3. FLUDARABINE [Concomitant]
  4. CYTOXAN [Concomitant]
  5. ADRIAMYCIN [Concomitant]
     Route: 065
  6. ADRIAMYCIN [Concomitant]
     Route: 065
  7. VINCRISTIN [Concomitant]
     Route: 065
  8. PREDNISONE [Concomitant]
  9. CHLORAMBUCIL [Concomitant]
  10. LASIX [Concomitant]
  11. BENADRYL [Concomitant]
     Route: 065
  12. DECADRON [Concomitant]
     Route: 065
  13. ZOFRAN [Concomitant]
     Route: 065
  14. KYTRIL [Concomitant]
     Route: 065
  15. TYLENOL [Concomitant]
     Route: 048
  16. BACTRIM DS [Concomitant]

REACTIONS (11)
  - Drug intolerance [Unknown]
  - Hypersensitivity [Unknown]
  - Dyspepsia [Unknown]
  - Chills [Unknown]
  - Pyrexia [Unknown]
  - Dehydration [Unknown]
  - Fatigue [Unknown]
  - Pulmonary embolism [Unknown]
  - Herpes zoster [Unknown]
  - Post herpetic neuralgia [Unknown]
  - Lymphadenopathy [Unknown]
